FAERS Safety Report 4911216-X (Version None)
Quarter: 2006Q1

REPORT INFORMATION
  Report Type: 
  Country: None (occurrence: None)
  Receive Date: 20060209
  Receipt Date: 20030627
  Transmission Date: 20060701
  Serious: Yes (Death, Hospitalization)
  Sender: FDA-Public Use
  Company Number: HQ4216416SEP2002

PATIENT
  Age: 75 Year
  Sex: Female

DRUGS (4)
  1. GEMTUZUMAB OZOGAMICIN (GEMTUZUMAB OZOGAMICIN, INJECTION) [Suspect]
     Indication: MYELOID LEUKAEMIA
     Dosage: 6 MG/M^2 1X  PER 1 DAY, INTRAVENOUS
     Route: 042
     Dates: start: 20020822, end: 20020822
  2. CYTARABINE [Concomitant]
  3. VANCOMYCIN [Concomitant]
  4. SPORANOX [Concomitant]

REACTIONS (12)
  - ACUTE MYELOID LEUKAEMIA [None]
  - BONE PAIN [None]
  - CANDIDIASIS [None]
  - CONDITION AGGRAVATED [None]
  - FUNGAL INFECTION [None]
  - HYPERTENSION [None]
  - MULTI-ORGAN FAILURE [None]
  - OEDEMA PERIPHERAL [None]
  - PLEURAL EFFUSION [None]
  - SEPSIS [None]
  - STAPHYLOCOCCAL INFECTION [None]
  - TACHYCARDIA [None]
